FAERS Safety Report 18347148 (Version 1)
Quarter: 2020Q4

REPORT INFORMATION
  Report Type: Other
  Country: US (occurrence: US)
  Receive Date: 20201005
  Receipt Date: 20201005
  Transmission Date: 20210114
  Serious: Yes (Death, Other)
  Sender: FDA-Public Use
  Company Number: US-ROCHE-2684003

PATIENT
  Sex: Male

DRUGS (3)
  1. OCREVUS [Suspect]
     Active Substance: OCRELIZUMAB
     Route: 042
     Dates: start: 20190423, end: 20200904
  2. REBIF [Concomitant]
     Active Substance: INTERFERON BETA-1A
  3. OCREVUS [Suspect]
     Active Substance: OCRELIZUMAB
     Indication: MULTIPLE SCLEROSIS
     Dosage: INFUSE 300 MG IV ONCE, THEN REPEAT IN 2 WEEKS
     Route: 042
     Dates: start: 20190423, end: 20200904

REACTIONS (5)
  - Sepsis [Fatal]
  - Necrotising fasciitis [Unknown]
  - Decubitus ulcer [Fatal]
  - Pseudomonal bacteraemia [Unknown]
  - Staphylococcal bacteraemia [Unknown]
